FAERS Safety Report 15113721 (Version 1)
Quarter: 2018Q3

REPORT INFORMATION
  Report Type: Report from Study
  Country: IT (occurrence: IT)
  Receive Date: 20180706
  Receipt Date: 20180706
  Transmission Date: 20181010
  Serious: Yes (Hospitalization)
  Sender: FDA-Public Use
  Company Number: IT-TEVA-2018-IT-920994

PATIENT
  Age: 21 Year
  Sex: Female

DRUGS (5)
  1. PROZIN 25 MG COMPRESSE RIVESTITE [Suspect]
     Active Substance: CHLORPROMAZINE HYDROCHLORIDE
     Indication: INTENTIONAL SELF-INJURY
     Route: 048
     Dates: start: 20180126, end: 20180126
  2. ARIPIPRAZOLE. [Suspect]
     Active Substance: ARIPIPRAZOLE
     Indication: INTENTIONAL SELF-INJURY
     Route: 048
     Dates: start: 20180126, end: 20180126
  3. ALPRAZOLAM. [Suspect]
     Active Substance: ALPRAZOLAM
     Indication: INTENTIONAL SELF-INJURY
     Route: 048
     Dates: start: 20180126, end: 20180126
  4. ESCITALOPRAM OXALATE. [Suspect]
     Active Substance: ESCITALOPRAM OXALATE
     Indication: INTENTIONAL SELF-INJURY
     Route: 048
     Dates: start: 20180126, end: 20180126
  5. ZITROMAX 500 MG COMPRESSE RIVESTITE CON FILM [Suspect]
     Active Substance: AZITHROMYCIN
     Indication: INTENTIONAL SELF-INJURY
     Route: 048
     Dates: start: 20180126, end: 20180126

REACTIONS (1)
  - Sopor [Recovering/Resolving]

NARRATIVE: CASE EVENT DATE: 20180126
